FAERS Safety Report 7381175-1 (Version None)
Quarter: 2011Q1

REPORT INFORMATION
  Report Type: 
  Country: None (occurrence: None)
  Receive Date: 20110329
  Receipt Date: 20110324
  Transmission Date: 20110831
  Serious: Yes (Disabling, Other)
  Sender: FDA-Public Use
  Company Number: CA-ABBOTT-11P-028-0714571-00

PATIENT
  Age: 28 Year
  Sex: Male

DRUGS (1)
  1. HUMIRA [Suspect]
     Indication: PSORIATIC ARTHROPATHY
     Route: 058
     Dates: start: 20080801, end: 20091001

REACTIONS (6)
  - DISABILITY [None]
  - PAIN [None]
  - IMPAIRED WORK ABILITY [None]
  - QUALITY OF LIFE DECREASED [None]
  - DEPRESSED MOOD [None]
  - PUSTULAR PSORIASIS [None]
